FAERS Safety Report 8488278-9 (Version None)
Quarter: 2012Q3

REPORT INFORMATION
  Report Type: 
  Country: None (occurrence: None)
  Receive Date: 20120705
  Receipt Date: 20120629
  Transmission Date: 20120928
  Serious: Yes (Other)
  Sender: FDA-Public Use
  Company Number: US-PFIZER INC-2010154941

PATIENT
  Sex: Male

DRUGS (1)
  1. PROTONIX [Suspect]

REACTIONS (3)
  - DIABETES MELLITUS [None]
  - OROPHARYNGEAL PAIN [None]
  - MYOCARDIAL INFARCTION [None]
